FAERS Safety Report 9414259 (Version 1)
Quarter: 2013Q3

REPORT INFORMATION
  Report Type: Spontaneous
  Country: US (occurrence: US)
  Receive Date: 20130723
  Receipt Date: 20130723
  Transmission Date: 20140515
  Serious: Yes (Hospitalization)
  Sender: FDA-Public Use
  Company Number: US-SANOFI-AVENTIS-2013SA073384

PATIENT
  Sex: 0

DRUGS (1)
  1. LANTUS [Suspect]
     Route: 065

REACTIONS (3)
  - Septic shock [Unknown]
  - Infection [Unknown]
  - Malaise [Unknown]
